FAERS Safety Report 10234694 (Version 2)
Quarter: 2014Q3

REPORT INFORMATION
  Report Type: Spontaneous
  Country: FR (occurrence: FR)
  Receive Date: 20140613
  Receipt Date: 20140701
  Transmission Date: 20150326
  Serious: Yes (Death)
  Sender: FDA-Public Use
  Company Number: FR-BEH-2014043131

PATIENT
  Age: 62 Year
  Sex: Male

DRUGS (4)
  1. TEGELINE [Suspect]
     Active Substance: HUMAN IMMUNOGLOBULIN G
     Indication: VIRAL DIARRHOEA
     Dosage: FRACTIONED IN FOUR DOSES, EVERY SIX HOURS FOR ONE DAY
     Route: 048
  2. PRIVIGEN [Suspect]
     Active Substance: HUMAN IMMUNOGLOBULIN G
     Indication: VIRAL DIARRHOEA
     Route: 042
  3. TEGELINE [Suspect]
     Active Substance: HUMAN IMMUNOGLOBULIN G
     Indication: GASTROENTERITIS NOROVIRUS
     Route: 042
  4. PRIVIGEN [Suspect]
     Active Substance: HUMAN IMMUNOGLOBULIN G
     Indication: GASTROENTERITIS NOROVIRUS
     Dosage: FRACTIONED IN FOUR DOSES, EVERY SIX HOURS FOR ONE DAY
     Route: 048

REACTIONS (3)
  - Escherichia bacteraemia [None]
  - Intentional product misuse [Fatal]
  - Drug ineffective for unapproved indication [Fatal]
